FAERS Safety Report 7336215-2 (Version None)
Quarter: 2011Q1

REPORT INFORMATION
  Report Type: 
  Country: None (occurrence: None)
  Receive Date: 20110307
  Receipt Date: 20110222
  Transmission Date: 20110831
  Serious: Yes (Hospitalization)
  Sender: FDA-Public Use
  Company Number: JP-PFIZER INC-2011032339

PATIENT
  Age: 75 Year
  Sex: Female
  Weight: 40 kg

DRUGS (3)
  1. NORVASC [Concomitant]
     Dosage: UNK
     Dates: end: 20091124
  2. GASTER [Concomitant]
     Dosage: UNK
  3. LIPITOR [Suspect]
     Dosage: 10 MG, UID/QD
     Route: 048
     Dates: end: 20091027

REACTIONS (2)
  - JAUNDICE [None]
  - LIVER DISORDER [None]
